FAERS Safety Report 6750686-1 (Version None)
Quarter: 2010Q2

REPORT INFORMATION
  Report Type: 
  Country: None (occurrence: None)
  Receive Date: 20100602
  Receipt Date: 20100514
  Transmission Date: 20101027
  Serious: No
  Sender: FDA-Public Use
  Company Number: US-BIOGENIDEC-2010BI010570

PATIENT
  Age: 56 Year
  Sex: Male

DRUGS (3)
  1. TYSABRI [Suspect]
     Indication: MULTIPLE SCLEROSIS
     Route: 042
     Dates: start: 20100223
  2. SOLU-MEDROL [Concomitant]
     Indication: PREMEDICATION
     Dates: start: 20100101
  3. BENADRYL [Concomitant]
     Indication: PREMEDICATION
     Dates: start: 20100101

REACTIONS (4)
  - DRUG EFFECT DECREASED [None]
  - GENERALISED ERYTHEMA [None]
  - HYPERSENSITIVITY [None]
  - URTICARIA [None]
